FAERS Safety Report 23191024 (Version 2)
Quarter: 2023Q4

REPORT INFORMATION
  Report Type: Report from Study
  Country: US (occurrence: US)
  Receive Date: 20231116
  Receipt Date: 20231228
  Transmission Date: 20240109
  Serious: Yes (Other)
  Sender: FDA-Public Use
  Company Number: US-ALXN-A202308372AA

PATIENT
  Sex: Female

DRUGS (1)
  1. ULTOMIRIS [Suspect]
     Active Substance: RAVULIZUMAB-CWVZ
     Indication: Myasthenia gravis
     Dosage: UNK
     Route: 065

REACTIONS (19)
  - Neuropathy peripheral [Unknown]
  - Systemic lupus erythematosus [Unknown]
  - Colitis ulcerative [Unknown]
  - Eyelid ptosis [Unknown]
  - Pain in extremity [Unknown]
  - Spinal osteoarthritis [Unknown]
  - Meniscus injury [Not Recovered/Not Resolved]
  - Dyspnoea [Unknown]
  - Fall [Unknown]
  - Iritis [Unknown]
  - Foot deformity [Unknown]
  - Candida infection [Unknown]
  - Coordination abnormal [Unknown]
  - Muscular weakness [Unknown]
  - Drug ineffective [Unknown]
  - Procedural pain [Not Recovered/Not Resolved]
  - Myalgia [Not Recovered/Not Resolved]
  - Arthralgia [Unknown]
  - Fatigue [Not Recovered/Not Resolved]

NARRATIVE: CASE EVENT DATE: 20230401
